FAERS Safety Report 9476630 (Version 1)
Quarter: 2013Q3

REPORT INFORMATION
  Report Type: Spontaneous
  Country: US (occurrence: US)
  Receive Date: 20130826
  Receipt Date: 20130826
  Transmission Date: 20140515
  Serious: Yes (Life-Threatening, Hospitalization)
  Sender: FDA-Public Use
  Company Number: PHHY2013US090916

PATIENT
  Age: 65 Year
  Sex: Female

DRUGS (16)
  1. LISINOPRIL [Suspect]
     Dosage: 40 MG, UNK
  2. ACETYLSALICYLIC ACID [Suspect]
     Dosage: 81 MG, UNK
  3. IBUPROFEN [Suspect]
     Dosage: 600 MG TID, AS NEEDED
  4. MOXIFLOXACIN [Suspect]
     Indication: UPPER RESPIRATORY TRACT INFECTION
  5. IODIXANOL [Suspect]
  6. PREDNISONE [Concomitant]
     Indication: UPPER RESPIRATORY TRACT INFECTION
  7. AMLODIPINE [Concomitant]
     Dosage: 5 MG, UNK
  8. METOPROLOL TARTRATE [Concomitant]
     Dosage: 12.5 MG, BID
  9. HYDROCHLOROTHIAZIDE [Concomitant]
     Dosage: 25 MG, UNK
  10. SIMVASTATIN [Concomitant]
     Dosage: 40 MG, UNK
  11. GLIPIZIDE [Concomitant]
     Dosage: 5 MG, QD
  12. BUPROPION [Concomitant]
     Dosage: 150 MG, UNK
  13. ALPRAZOLAM [Concomitant]
     Dosage: 0.25 MG, BID
  14. METHOCARBAMOL [Concomitant]
     Dosage: 500 MG, UNK
  15. CALCIUM + VITAMIN D [Concomitant]
  16. ALBUTEROL [Concomitant]
     Dosage: 2 DF, Q6H

REACTIONS (11)
  - Angioedema [Recovered/Resolved]
  - Swollen tongue [Recovered/Resolved]
  - Epiglottic oedema [Recovered/Resolved]
  - Respiratory distress [Recovered/Resolved]
  - Dysphagia [Recovered/Resolved]
  - Pharyngeal oedema [Recovered/Resolved]
  - Dyspnoea [Recovered/Resolved]
  - Aphasia [Recovered/Resolved]
  - Hypotension [Recovered/Resolved]
  - Somnolence [Recovered/Resolved]
  - Mental status changes [Recovered/Resolved]
